FAERS Safety Report 14260581 (Version 2)
Quarter: 2018Q2

REPORT INFORMATION
  Report Type: Report from Study
  Country: TR (occurrence: TR)
  Receive Date: 20171207
  Receipt Date: 20180403
  Transmission Date: 20180711
  Serious: Yes (Hospitalization)
  Sender: FDA-Public Use
  Company Number: PHHO2017TR016493

PATIENT
  Age: 60 Year
  Sex: Female

DRUGS (11)
  1. PASIREOTIDE. [Suspect]
     Active Substance: PASIREOTIDE
     Indication: PITUITARY-DEPENDENT CUSHING^S SYNDROME
     Dosage: 0.6 MG, (2X0.6)
     Route: 058
     Dates: start: 20160222, end: 20160908
  2. CLOPIDOGREL [Concomitant]
     Active Substance: CLOPIDOGREL BISULFATE
     Indication: CORONARY ARTERY DISEASE
     Dosage: 75 MG, QD
     Route: 065
     Dates: end: 20161219
  3. CLOPIDOGREL [Concomitant]
     Active Substance: CLOPIDOGREL BISULFATE
     Dosage: 75 MG, QD
     Route: 065
     Dates: end: 20170111
  4. NIFEDIPINE. [Concomitant]
     Active Substance: NIFEDIPINE
     Indication: HYPERTENSION
     Dosage: 60 MG, QD
     Route: 065
     Dates: end: 20161219
  5. PASIREOTIDE. [Suspect]
     Active Substance: PASIREOTIDE
     Dosage: 0.3 MG, (2X0.3)
     Route: 058
     Dates: start: 20160909, end: 20161009
  6. METOPROLOL. [Concomitant]
     Active Substance: METOPROLOL
     Indication: CORONARY ARTERY DISEASE
     Dosage: 100 MG, BID
     Route: 065
     Dates: end: 20161219
  7. GLICLAZIDE [Concomitant]
     Active Substance: GLICLAZIDE
     Indication: DIABETES MELLITUS
     Dosage: 30 MG, QD
     Route: 065
     Dates: end: 20161219
  8. VALSARTAN/HYDROCHLOROTHIAZIDE [Concomitant]
     Active Substance: HYDROCHLOROTHIAZIDE\VALSARTAN
     Indication: HYPERTENSION
     Dosage: 1X320/25 MG
     Route: 065
     Dates: end: 20161219
  9. ATORVASTATIN CALCIUM. [Concomitant]
     Active Substance: ATORVASTATIN CALCIUM
     Indication: HYPERLIPIDAEMIA
     Dosage: 20 MG, QD
     Route: 065
     Dates: end: 20161219
  10. PASIREOTIDE. [Suspect]
     Active Substance: PASIREOTIDE
     Dosage: 0.6 MG, (2X0.6)
     Route: 058
     Dates: start: 20161010, end: 20161209
  11. TRIMETAZIDINE [Concomitant]
     Active Substance: TRIMETAZIDINE
     Indication: CORONARY ARTERY DISEASE
     Dosage: 35 MG, BID
     Route: 065
     Dates: end: 20161219

REACTIONS (1)
  - Pancreatitis acute [Recovered/Resolved]

NARRATIVE: CASE EVENT DATE: 20161219
